FAERS Safety Report 5496723-6 (Version None)
Quarter: 2007Q4

REPORT INFORMATION
  Report Type: 
  Country: None (occurrence: None)
  Receive Date: 20071023
  Receipt Date: 20071008
  Transmission Date: 20080405
  Serious: Yes (Hospitalization)
  Sender: FDA-Public Use
  Company Number: 2007BI018276

PATIENT
  Age: 45 Year
  Sex: Male
  Weight: 66 kg

DRUGS (3)
  1. AVONEX [Suspect]
     Indication: MULTIPLE SCLEROSIS
     Dosage: 30 UG;QW;IM
     Route: 030
     Dates: start: 20050401
  2. BETASERON [Concomitant]
  3. IBUPROFEN [Concomitant]

REACTIONS (6)
  - ANISOCYTOSIS [None]
  - DEPRESSION [None]
  - HYPERTENSION [None]
  - INFLAMMATION [None]
  - MARROW HYPERPLASIA [None]
  - RETROPERITONEAL FIBROSIS [None]
